FAERS Safety Report 9651795 (Version 4)
Quarter: 2013Q4

REPORT INFORMATION
  Report Type: Report from Study
  Country: JP (occurrence: JP)
  Receive Date: 20131029
  Receipt Date: 20131226
  Transmission Date: 20140711
  Serious: Yes (Life-Threatening, Other)
  Sender: FDA-Public Use
  Company Number: JP-PFIZER INC-2013306045

PATIENT
  Age: 34 Year
  Sex: Male
  Weight: 87 kg

DRUGS (10)
  1. FOSPHENYTOIN SODIUM [Suspect]
     Indication: STATUS EPILEPTICUS
     Dosage: 22.5 MG/KG AT 150 MG/MIN IN 0.9% PHYSIOLOGICAL SALINE (DILUTION RATIO: 1:2)
     Dates: start: 20130920
  2. FOSPHENYTOIN SODIUM [Suspect]
     Dosage: 7.5 MG/KG/DAY AT 50 MG/MIN IN 0.9% PHYSIOLOGICAL SALINE (DILUTION RATIO: 1:5)
     Dates: start: 20130921
  3. FOSPHENYTOIN SODIUM [Suspect]
     Dosage: 7.5 MG/KG/DAY AT 50 MG/MIN IN 0.9% PHYSIOLOGICAL SALINE (DILUTION RATIO: 1:5)
     Dates: start: 20130922
  4. FOSPHENYTOIN SODIUM [Suspect]
     Dosage: 7.5 MG/KG/DAY AT 50 MG/MIN IN 0.9% PHYSIOLOGICAL SALINE (DILUTION RATIO: 1:5)
     Dates: start: 20130923
  5. TAKEPRON [Concomitant]
     Indication: PROPHYLAXIS
     Dosage: 15 MG, UNK
     Route: 048
     Dates: start: 20130921
  6. LOXOPROFEN [Concomitant]
     Indication: PROPHYLAXIS
     Dosage: 60 MG, UNK
     Route: 048
     Dates: start: 20130921
  7. MEROPENEM [Concomitant]
     Indication: PROPHYLAXIS
     Dosage: 6 G, UNK
     Dates: start: 20130923
  8. GLYCEOL [Concomitant]
     Indication: PROPHYLAXIS
     Dosage: 200 ML, UNK
     Dates: start: 20130923
  9. RINDERON [Concomitant]
     Indication: PROPHYLAXIS
     Dosage: 2 MG, UNK
     Dates: start: 20130923
  10. TEGRETOL [Concomitant]
     Indication: EPILEPSY
     Dosage: 400 MG, UNK
     Route: 048
     Dates: start: 20130920

REACTIONS (4)
  - Brain oedema [Recovered/Resolved with Sequelae]
  - Hemiplegia [Recovered/Resolved with Sequelae]
  - Brain abscess [Recovered/Resolved with Sequelae]
  - Pyrexia [Recovering/Resolving]
